FAERS Safety Report 20649184 (Version 1)
Quarter: 2022Q1

REPORT INFORMATION
  Report Type: Spontaneous
  Country: US (occurrence: US)
  Receive Date: 20220329
  Receipt Date: 20220329
  Transmission Date: 20220424
  Serious: No
  Sender: FDA-Public Use
  Company Number: US-PFIZER INC-202200349523

PATIENT
  Age: 44 Year
  Sex: Male
  Weight: 65.76 kg

DRUGS (11)
  1. GABAPENTIN [Suspect]
     Active Substance: GABAPENTIN
     Dosage: UNK
  2. PREGABALIN [Suspect]
     Active Substance: PREGABALIN
     Dosage: UNK
  3. DULOXETINE [Suspect]
     Active Substance: DULOXETINE
     Dosage: UNK
  4. MELOXICAM [Suspect]
     Active Substance: MELOXICAM
     Dosage: UNK
  5. CYCLOBENZAPRINE [Suspect]
     Active Substance: CYCLOBENZAPRINE
     Dosage: UNK
  6. SUMATRIPTAN [Suspect]
     Active Substance: SUMATRIPTAN
     Dosage: UNK
  7. NORTRIPTYLINE [Suspect]
     Active Substance: NORTRIPTYLINE
     Dosage: UNK
  8. PREDNISONE [Suspect]
     Active Substance: PREDNISONE
     Dosage: UNK
  9. TYLENOL [Suspect]
     Active Substance: ACETAMINOPHEN
     Dosage: UNK
  10. CODEINE [Suspect]
     Active Substance: CODEINE
     Dosage: UNK
  11. CAFFEINE [Suspect]
     Active Substance: CAFFEINE
     Dosage: UNK

REACTIONS (23)
  - Nervous system disorder [Not Recovered/Not Resolved]
  - Anxiety [Not Recovered/Not Resolved]
  - Stress [Not Recovered/Not Resolved]
  - Nightmare [Not Recovered/Not Resolved]
  - Feeling abnormal [Not Recovered/Not Resolved]
  - Dyskinesia [Not Recovered/Not Resolved]
  - Tic [Not Recovered/Not Resolved]
  - Ear discomfort [Not Recovered/Not Resolved]
  - Disturbance in attention [Not Recovered/Not Resolved]
  - Psychomotor hyperactivity [Not Recovered/Not Resolved]
  - Dizziness [Not Recovered/Not Resolved]
  - Nausea [Not Recovered/Not Resolved]
  - Tinnitus [Not Recovered/Not Resolved]
  - Fatigue [Not Recovered/Not Resolved]
  - Depression [Not Recovered/Not Resolved]
  - Irritability [Not Recovered/Not Resolved]
  - Slow speech [Not Recovered/Not Resolved]
  - Micturition disorder [Not Recovered/Not Resolved]
  - Vomiting [Not Recovered/Not Resolved]
  - Constipation [Not Recovered/Not Resolved]
  - Memory impairment [Not Recovered/Not Resolved]
  - Mania [Not Recovered/Not Resolved]
  - Rash [Not Recovered/Not Resolved]

NARRATIVE: CASE EVENT DATE: 20220218
